FAERS Safety Report 15111556 (Version 1)
Quarter: 2018Q3

REPORT INFORMATION
  Report Type: Spontaneous
  Country: US (occurrence: US)
  Receive Date: 20180705
  Receipt Date: 20180705
  Transmission Date: 20181010
  Serious: No
  Sender: FDA-Public Use
  Company Number: US-BEH-2018092452

PATIENT
  Sex: Female
  Weight: 96.6 kg

DRUGS (29)
  1. PEPTO?BISMOL [Concomitant]
     Active Substance: BISMUTH SUBSALICYLATE
  2. SALONPAS                           /00735901/ [Concomitant]
     Active Substance: MENTHOL\METHYL SALICYLATE
  3. APREMILAST [Concomitant]
     Active Substance: APREMILAST
  4. METFORMIN [Concomitant]
     Active Substance: METFORMIN HYDROCHLORIDE
  5. PREVACID [Concomitant]
     Active Substance: LANSOPRAZOLE
  6. CYANOCOBALAMIN. [Concomitant]
     Active Substance: CYANOCOBALAMIN
  7. ACETAMINOPHEN. [Concomitant]
     Active Substance: ACETAMINOPHEN
  8. FOSAMAX [Concomitant]
     Active Substance: ALENDRONATE SODIUM
  9. RITUXAN [Concomitant]
     Active Substance: RITUXIMAB
  10. PROAIR HFA [Concomitant]
     Active Substance: ALBUTEROL SULFATE
  11. PERCOCET                           /00446701/ [Concomitant]
     Active Substance: ACETAMINOPHEN\OXYCODONE HYDROCHLORIDE\OXYCODONE TEREPHTHALATE
  12. MOTRIN [Concomitant]
     Active Substance: IBUPROFEN
  13. BUDESONIDE. [Concomitant]
     Active Substance: BUDESONIDE
  14. EPINEPHRINE. [Concomitant]
     Active Substance: EPINEPHRINE
  15. LIDOCAINE. [Concomitant]
     Active Substance: LIDOCAINE
  16. PREDNISONE. [Concomitant]
     Active Substance: PREDNISONE
  17. LYRICA [Concomitant]
     Active Substance: PREGABALIN
  18. NYSTATIN W/TRIAMCINOLONE           /01760101/ [Concomitant]
  19. HIZENTRA [Suspect]
     Active Substance: HUMAN IMMUNOGLOBULIN G
     Indication: HYPOGAMMAGLOBULINAEMIA
     Dosage: 10 G, QW
     Route: 058
     Dates: start: 20160328
  20. EMETROL [Concomitant]
     Active Substance: DEXTROSE\FRUCTOSE\PHOSPHORIC ACID
  21. NEILMED SINUS RINSE [Concomitant]
     Active Substance: SODIUM BICARBONATE\SODIUM CHLORIDE
  22. DIPHENHYDRAMINE. [Concomitant]
     Active Substance: DIPHENHYDRAMINE
  23. EXCEDRIN [Concomitant]
     Active Substance: ACETAMINOPHEN\ASPIRIN\CAFFEINE
  24. SIMVASTATIN. [Concomitant]
     Active Substance: SIMVASTATIN
  25. NOVOLIN N [Concomitant]
     Active Substance: INSULIN HUMAN
  26. ROLAIDS                            /00069401/ [Concomitant]
     Active Substance: DIHYDROXYALUMINUM SODIUM CARBONATE
  27. BACTRIM [Concomitant]
     Active Substance: SULFAMETHOXAZOLE\TRIMETHOPRIM
  28. APRISO [Concomitant]
     Active Substance: MESALAMINE
  29. ALBUTEROL SULFATE. [Concomitant]
     Active Substance: ALBUTEROL SULFATE

REACTIONS (1)
  - Restless legs syndrome [Unknown]
